FAERS Safety Report 20840488 (Version 5)
Quarter: 2023Q1

REPORT INFORMATION
  Report Type: Report from Study
  Country: CN (occurrence: None)
  Receive Date: 20220517
  Receipt Date: 20230217
  Transmission Date: 20230417
  Serious: Yes (Life-Threatening)
  Sender: FDA-Public Use
  Company Number: 2022A185565

PATIENT
  Age: 26788 Day
  Sex: Male

DRUGS (61)
  1. DURVALUMAB [Suspect]
     Active Substance: DURVALUMAB
     Indication: Non-small cell lung cancer
     Route: 042
     Dates: start: 20220310, end: 20220310
  2. DURVALUMAB [Suspect]
     Active Substance: DURVALUMAB
     Indication: Non-small cell lung cancer
     Route: 042
     Dates: start: 20220512, end: 20220512
  3. DURVALUMAB [Suspect]
     Active Substance: DURVALUMAB
     Indication: Non-small cell lung cancer
     Route: 042
     Dates: start: 20220609, end: 20220609
  4. DURVALUMAB [Suspect]
     Active Substance: DURVALUMAB
     Indication: Non-small cell lung cancer
     Route: 042
     Dates: start: 20220715, end: 20220715
  5. DURVALUMAB [Suspect]
     Active Substance: DURVALUMAB
     Indication: Non-small cell lung cancer
     Route: 042
     Dates: start: 20220811, end: 20220811
  6. DURVALUMAB [Suspect]
     Active Substance: DURVALUMAB
     Indication: Non-small cell lung cancer
     Route: 042
     Dates: start: 20220908, end: 20220908
  7. DURVALUMAB [Suspect]
     Active Substance: DURVALUMAB
     Indication: Non-small cell lung cancer
     Route: 042
     Dates: start: 20221008, end: 20221008
  8. DURVALUMAB [Suspect]
     Active Substance: DURVALUMAB
     Indication: Non-small cell lung cancer
     Route: 042
     Dates: start: 20221103, end: 20221103
  9. DURVALUMAB [Suspect]
     Active Substance: DURVALUMAB
     Indication: Non-small cell lung cancer
     Route: 042
     Dates: start: 20221201, end: 20221201
  10. DURVALUMAB [Suspect]
     Active Substance: DURVALUMAB
     Indication: Non-small cell lung cancer
     Route: 042
     Dates: start: 20230116, end: 20230116
  11. DURVALUMAB [Suspect]
     Active Substance: DURVALUMAB
     Indication: Non-small cell lung cancer
     Route: 042
     Dates: start: 20230213, end: 20230213
  12. DURVALUMAB [Suspect]
     Active Substance: DURVALUMAB
     Indication: Non-small cell lung cancer
     Route: 042
     Dates: start: 20211214, end: 20211214
  13. DURVALUMAB [Suspect]
     Active Substance: DURVALUMAB
     Indication: Non-small cell lung cancer
     Route: 042
     Dates: start: 20220105, end: 20220105
  14. DURVALUMAB [Suspect]
     Active Substance: DURVALUMAB
     Indication: Non-small cell lung cancer
     Route: 042
     Dates: start: 20220126, end: 20220126
  15. DURVALUMAB [Suspect]
     Active Substance: DURVALUMAB
     Indication: Non-small cell lung cancer
     Route: 042
     Dates: start: 20220217, end: 20220217
  16. DURVALUMAB [Suspect]
     Active Substance: DURVALUMAB
     Indication: Non-small cell lung cancer
     Route: 042
     Dates: start: 20220408, end: 20220408
  17. TREMELIMUMAB [Suspect]
     Active Substance: TREMELIMUMAB
     Indication: Non-small cell lung cancer
     Route: 042
     Dates: start: 20211214, end: 20211214
  18. TREMELIMUMAB [Suspect]
     Active Substance: TREMELIMUMAB
     Indication: Non-small cell lung cancer
     Route: 042
     Dates: start: 20220105, end: 20220105
  19. TREMELIMUMAB [Suspect]
     Active Substance: TREMELIMUMAB
     Indication: Non-small cell lung cancer
     Route: 042
     Dates: start: 20220126, end: 20220126
  20. TREMELIMUMAB [Suspect]
     Active Substance: TREMELIMUMAB
     Indication: Non-small cell lung cancer
     Route: 042
     Dates: start: 20220217, end: 20220217
  21. TREMELIMUMAB [Suspect]
     Active Substance: TREMELIMUMAB
     Indication: Non-small cell lung cancer
     Route: 042
     Dates: start: 20220408, end: 20220408
  22. PEMETREXED [Suspect]
     Active Substance: PEMETREXED
     Indication: Non-small cell lung cancer
     Route: 042
     Dates: start: 20211214, end: 20211214
  23. PEMETREXED [Suspect]
     Active Substance: PEMETREXED
     Indication: Non-small cell lung cancer
     Route: 042
     Dates: start: 20220105, end: 20220105
  24. PEMETREXED [Suspect]
     Active Substance: PEMETREXED
     Indication: Non-small cell lung cancer
     Route: 042
     Dates: start: 20220126, end: 20220126
  25. PEMETREXED [Suspect]
     Active Substance: PEMETREXED
     Indication: Non-small cell lung cancer
     Route: 042
     Dates: start: 20220217, end: 20220217
  26. PEMETREXED [Suspect]
     Active Substance: PEMETREXED
     Indication: Non-small cell lung cancer
     Route: 042
     Dates: start: 20220310, end: 20220310
  27. PEMETREXED [Suspect]
     Active Substance: PEMETREXED
     Indication: Non-small cell lung cancer
     Route: 042
     Dates: start: 20220408, end: 20220408
  28. PEMETREXED [Suspect]
     Active Substance: PEMETREXED
     Indication: Non-small cell lung cancer
     Route: 042
     Dates: start: 20220512, end: 20220512
  29. PEMETREXED [Suspect]
     Active Substance: PEMETREXED
     Indication: Non-small cell lung cancer
     Route: 042
     Dates: start: 20220609, end: 20220609
  30. CARBOPLATIN [Suspect]
     Active Substance: CARBOPLATIN
     Indication: Non-small cell lung cancer
     Dosage: 5.0 AUC EVERY THREE WEEKS
     Route: 042
     Dates: start: 20211214, end: 20211214
  31. CARBOPLATIN [Suspect]
     Active Substance: CARBOPLATIN
     Indication: Non-small cell lung cancer
     Dosage: 5.0 AUC EVERY THREE WEEKS
     Route: 042
     Dates: start: 20220105, end: 20220105
  32. CARBOPLATIN [Suspect]
     Active Substance: CARBOPLATIN
     Indication: Non-small cell lung cancer
     Dosage: 5.0 AUC EVERY THREE WEEKS
     Route: 042
     Dates: start: 20220126, end: 20220126
  33. CARBOPLATIN [Suspect]
     Active Substance: CARBOPLATIN
     Indication: Non-small cell lung cancer
     Dosage: 5.0 AUC EVERY THREE WEEKS
     Route: 042
     Dates: start: 20220217, end: 20220217
  34. RECOMBINANT HUMAN GRANULOCYTE COLONY STIMULATING FACTOR INJECTION [Concomitant]
     Indication: Treatment delayed
     Route: 058
     Dates: start: 20220415, end: 20220419
  35. AMLODIPINE [Concomitant]
     Active Substance: AMLODIPINE BESYLATE
     Indication: Hypertension
     Route: 048
     Dates: start: 201709
  36. DEXAMETHASONE TABLETS [Concomitant]
     Indication: Chemotherapy
     Route: 048
     Dates: start: 20220406, end: 20220408
  37. RABELLA FOR INJECTION [Concomitant]
     Indication: Gastric disorder
     Dosage: 20.0000 MG ST
     Route: 042
     Dates: start: 20220407, end: 20220407
  38. DEXAMETHASONE SODIUM PHOSPHATE [Concomitant]
     Active Substance: DEXAMETHASONE SODIUM PHOSPHATE
     Indication: Inflammation
     Dosage: 5.0000 MG ST
     Route: 042
     Dates: start: 20220407, end: 20220407
  39. HUMAN GRANULOCYTE STIMULATING FACTOR INJECTION [Concomitant]
     Indication: White blood cell count decreased
     Route: 058
     Dates: start: 20220316, end: 20220316
  40. HUMAN GRANULOCYTE STIMULATING FACTOR INJECTION [Concomitant]
     Indication: White blood cell count decreased
     Route: 058
     Dates: start: 20220316, end: 20220316
  41. HUMAN GRANULOCYTE STIMULATING FACTOR INJECTION [Concomitant]
     Indication: Treatment delayed
     Route: 058
     Dates: start: 20220316, end: 20220316
  42. HUMAN GRANULOCYTE STIMULATING FACTOR INJECTION [Concomitant]
     Indication: White blood cell count decreased
     Route: 058
     Dates: start: 20220318, end: 20220320
  43. HUMAN GRANULOCYTE STIMULATING FACTOR INJECTION [Concomitant]
     Indication: White blood cell count decreased
     Route: 058
     Dates: start: 20220318, end: 20220320
  44. HUMAN GRANULOCYTE STIMULATING FACTOR INJECTION [Concomitant]
     Indication: Treatment delayed
     Route: 058
     Dates: start: 20220318, end: 20220320
  45. RECOMBINANT HUMAN THROMBOPOIETIN INJECTION [Concomitant]
     Indication: Platelet count decreased
     Dosage: 15000.00 U DAILY
     Route: 058
     Dates: start: 20220324, end: 20220327
  46. RECOMBINANT HUMAN THROMBOPOIETIN INJECTION [Concomitant]
     Indication: Treatment delayed
     Dosage: 15000.00 U DAILY
     Route: 058
     Dates: start: 20220324, end: 20220327
  47. RECOMBINANT HUMAN THROMBOPOIETIN INJECTION [Concomitant]
     Indication: Platelet count decreased
     Dosage: 15000.00 U DAILY
     Route: 058
     Dates: start: 20220324, end: 20220327
  48. PALONOSETRON HYDROCHLORIDE [Concomitant]
     Active Substance: PALONOSETRON HYDROCHLORIDE
     Indication: Prophylaxis of nausea and vomiting
     Dosage: 0.2500 MG ST
     Route: 042
     Dates: start: 20220407, end: 20220407
  49. MIXED NUCLEOSIDE TABLETS [Concomitant]
     Indication: Treatment delayed
     Route: 048
     Dates: start: 20220301, end: 20220330
  50. MIXED NUCLEOSIDE TABLETS [Concomitant]
     Indication: Anaemia
     Route: 048
     Dates: start: 20220301, end: 20220330
  51. MIXED NUCLEOSIDE TABLETS [Concomitant]
     Indication: Platelet count decreased
     Route: 048
     Dates: start: 20220301, end: 20220330
  52. MIXED NUCLEOSIDE TABLETS [Concomitant]
     Indication: Treatment delayed
     Route: 048
     Dates: start: 20220415, end: 20220419
  53. MIXED NUCLEOSIDE TABLETS [Concomitant]
     Indication: Anaemia
     Route: 048
     Dates: start: 20220415, end: 20220419
  54. MIXED NUCLEOSIDE TABLETS [Concomitant]
     Indication: Platelet count decreased
     Route: 048
     Dates: start: 20220415, end: 20220419
  55. FERROUS SUCCINATE TABLETS [Concomitant]
     Indication: Treatment delayed
     Route: 048
     Dates: start: 20220301
  56. HETROMBOPAG ETHANOLAMINE TABLETS [Concomitant]
     Indication: Treatment delayed
     Route: 048
     Dates: start: 20220301, end: 20220330
  57. HETROMBOPAG ETHANOLAMINE TABLETS [Concomitant]
     Indication: Anaemia
     Route: 048
     Dates: start: 20220301, end: 20220330
  58. HETROMBOPAG ETHANOLAMINE TABLETS [Concomitant]
     Indication: Platelet count decreased
     Route: 048
     Dates: start: 20220301, end: 20220330
  59. HETROMBOPAG ETHANOLAMINE TABLETS [Concomitant]
     Indication: Treatment delayed
     Route: 048
     Dates: start: 20220415, end: 20220419
  60. HETROMBOPAG ETHANOLAMINE TABLETS [Concomitant]
     Indication: Anaemia
     Route: 048
     Dates: start: 20220415, end: 20220419
  61. HETROMBOPAG ETHANOLAMINE TABLETS [Concomitant]
     Indication: Platelet count decreased
     Route: 048
     Dates: start: 20220415, end: 20220419

REACTIONS (1)
  - Myelosuppression [Recovered/Resolved]

NARRATIVE: CASE EVENT DATE: 20220415
